FAERS Safety Report 14650014 (Version 1)
Quarter: 2018Q1

REPORT INFORMATION
  Report Type: Spontaneous
  Country: GB (occurrence: GB)
  Receive Date: 20180316
  Receipt Date: 20180316
  Transmission Date: 20180509
  Serious: Yes (Other)
  Sender: FDA-Public Use
  Company Number: GB-SA-2017SA144775

PATIENT
  Age: 33 Year
  Sex: Female

DRUGS (4)
  1. LEMTRADA [Suspect]
     Active Substance: ALEMTUZUMAB
     Indication: MULTIPLE SCLEROSIS
     Route: 041
     Dates: start: 20161114
  2. PENICILLIN [Concomitant]
     Active Substance: PENICILLIN
     Route: 065
  3. PREGNACARE [Concomitant]
     Active Substance: MINERALS\VITAMINS
     Route: 065
  4. VITAMIN D [Concomitant]
     Active Substance: CHOLECALCIFEROL
     Route: 065

REACTIONS (7)
  - Blood thyroid stimulating hormone increased [Unknown]
  - Haemorrhage [Unknown]
  - Exposure during pregnancy [Unknown]
  - Hyperthyroidism [Unknown]
  - Hypothyroidism [Unknown]
  - Thyroxine decreased [Unknown]
  - Exposure via breast milk [Unknown]
